FAERS Safety Report 24655684 (Version 2)
Quarter: 2025Q3

REPORT INFORMATION
  Report Type: Spontaneous
  Country: CH (occurrence: None)
  Receive Date: 20241123
  Receipt Date: 20250809
  Transmission Date: 20251021
  Serious: Yes (Death, Other)
  Sender: ALEXION PHARMACEUTICALS
  Company Number: None

PATIENT
  Age: 76 Year
  Sex: Male
  Weight: 89.6 kg

DRUGS (21)
  1. IMFINZI [Suspect]
     Active Substance: DURVALUMAB
     Indication: Cholangiocarcinoma
  2. IMFINZI [Suspect]
     Active Substance: DURVALUMAB
     Dates: start: 20240730, end: 20240730
  3. IMFINZI [Suspect]
     Active Substance: DURVALUMAB
     Dates: start: 20240827, end: 20240827
  4. LINAGLIPTIN [Concomitant]
     Active Substance: LINAGLIPTIN
  5. METFORMIN AXAPHARM [Concomitant]
  6. METOPROLOL SUCCINATE [Concomitant]
     Active Substance: METOPROLOL SUCCINATE
  7. MYSOLINE [Concomitant]
     Active Substance: PRIMIDONE
  8. RAMIPRIL [Concomitant]
     Active Substance: RAMIPRIL
  9. XARELTO [Concomitant]
     Active Substance: RIVAROXABAN
  10. TORSEMIDE [Concomitant]
     Active Substance: TORSEMIDE
  11. GEMCITABINE [Concomitant]
     Active Substance: GEMCITABINE
  12. GEMCITABINE [Concomitant]
     Active Substance: GEMCITABINE
  13. GEMCITABINE [Concomitant]
     Active Substance: GEMCITABINE
  14. GEMCITABINE [Concomitant]
     Active Substance: GEMCITABINE
  15. GEMCITABINE [Concomitant]
     Active Substance: GEMCITABINE
  16. PARAPLATIN [Concomitant]
     Active Substance: CARBOPLATIN
  17. PARAPLATIN [Concomitant]
     Active Substance: CARBOPLATIN
  18. PARAPLATIN [Concomitant]
     Active Substance: CARBOPLATIN
  19. NOVORAPID [Concomitant]
     Active Substance: INSULIN ASPART
     Indication: Type 2 diabetes mellitus
  20. LANTUS [Concomitant]
     Active Substance: INSULIN GLARGINE
     Indication: Type 2 diabetes mellitus
  21. NALOXONE HYDROCHLORIDE\OXYCODONE HYDROCHLORIDE [Concomitant]
     Active Substance: NALOXONE HYDROCHLORIDE\OXYCODONE HYDROCHLORIDE

REACTIONS (4)
  - Immune-mediated adverse reaction [Fatal]
  - Myositis [Fatal]
  - Myocarditis [Fatal]
  - Muscular weakness [Fatal]

NARRATIVE: CASE EVENT DATE: 20240902
